FAERS Safety Report 18538406 (Version 1)
Quarter: 2020Q4

REPORT INFORMATION
  Report Type: Spontaneous
  Country: US (occurrence: US)
  Receive Date: 20201124
  Receipt Date: 20201124
  Transmission Date: 20210114
  Serious: No
  Sender: FDA-Public Use
  Company Number: US-SA-2020SA325822

PATIENT

DRUGS (2)
  1. DUPIXENT [Suspect]
     Active Substance: DUPILUMAB
     Indication: ECZEMA
     Dosage: 300 MG, QOW
     Route: 065
  2. AIMOVIG [Concomitant]
     Active Substance: ERENUMAB-AOOE
     Route: 065

REACTIONS (6)
  - Paraesthesia [Unknown]
  - Hypoaesthesia [Unknown]
  - Pruritus [Unknown]
  - Pain [Unknown]
  - Injection site swelling [Not Recovered/Not Resolved]
  - Injection site pain [Unknown]
